FAERS Safety Report 5110597-4 (Version None)
Quarter: 2006Q3

REPORT INFORMATION
  Report Type: 
  Country: None (occurrence: None)
  Receive Date: 20060731
  Receipt Date: 20060612
  Transmission Date: 20061208
  Serious: No
  Sender: FDA-Public Use
  Company Number: 2006PV015491

PATIENT
  Age: 46 Year
  Sex: Female

DRUGS (4)
  1. BYETTA [Suspect]
     Indication: DRUG USE FOR UNKNOWN INDICATION
     Dosage: SEE IMAGE
     Route: 058
     Dates: start: 20060101, end: 20060101
  2. BYETTA [Suspect]
     Indication: DRUG USE FOR UNKNOWN INDICATION
     Dosage: SEE IMAGE
     Route: 058
     Dates: start: 20060101
  3. METFORMIN HCL [Concomitant]
  4. BLOOD PRESSURE MEDICATION [Concomitant]

REACTIONS (2)
  - SALIVARY GLAND ENLARGEMENT [None]
  - SALIVARY HYPERSECRETION [None]
